FAERS Safety Report 19195182 (Version 1)
Quarter: 2021Q2

REPORT INFORMATION
  Report Type: Spontaneous
  Country: CN (occurrence: CN)
  Receive Date: 20210429
  Receipt Date: 20210429
  Transmission Date: 20210717
  Serious: Yes (Death, Hospitalization)
  Sender: FDA-Public Use
  Company Number: CN-JNJFOC-20210450944

PATIENT
  Age: 40 Year
  Sex: Male

DRUGS (1)
  1. REMICADE [Suspect]
     Active Substance: INFLIXIMAB
     Indication: CROHN^S DISEASE
     Dosage: 5 MG/KG INTRAVENOUS INFUSION AT WEEKS 1, 2, AND 6, AND EVERY 8 WEEKS THEREAFTER
     Route: 042
     Dates: start: 2018

REACTIONS (1)
  - Colorectal cancer metastatic [Fatal]
